FAERS Safety Report 11990454 (Version 1)
Quarter: 2016Q1

REPORT INFORMATION
  Report Type: Spontaneous
  Country: FR (occurrence: FR)
  Receive Date: 20160202
  Receipt Date: 20160202
  Transmission Date: 20160526
  Serious: Yes (Death, Hospitalization)
  Sender: FDA-Public Use
  Company Number: FR-GILEAD-2016-0195636

PATIENT
  Age: 76 Year
  Sex: Male
  Weight: 70 kg

DRUGS (11)
  1. LEVOFLOXACINE MYLAN                /01278901/ [Concomitant]
     Active Substance: LEVOFLOXACIN
     Indication: INFECTION
     Dosage: 500 MG, BID
     Route: 048
     Dates: start: 20151212
  2. NORMACOL                           /00086101/ [Concomitant]
     Active Substance: SULFAMETHOXAZOLE\TRIMETHOPRIM
     Indication: CONSTIPATION
     Dosage: UNK
     Route: 048
     Dates: start: 20151218, end: 20151218
  3. ZYDELIG [Suspect]
     Active Substance: IDELALISIB
     Indication: CHRONIC LYMPHOCYTIC LEUKAEMIA
     Dosage: 150 MG, BID
     Route: 048
     Dates: start: 20140924, end: 20151214
  4. FLUOXETINE ARROW [Concomitant]
     Active Substance: FLUOXETINE HYDROCHLORIDE
     Indication: DEPRESSION
     Dosage: 20 MG, QD
     Route: 048
  5. PIPERACILLIN AND TAZOBACTAM [Suspect]
     Active Substance: PIPERACILLIN SODIUM\TAZOBACTAM SODIUM
     Indication: INFECTION
     Dosage: 4 G, TID
     Route: 042
     Dates: start: 20151226, end: 20151228
  6. ATENOLOL ARROW [Concomitant]
     Indication: HYPERTENSION
     Dosage: 50 MG, QD
     Route: 048
  7. INEXIUM                            /01479302/ [Concomitant]
     Active Substance: ESOMEPRAZOLE MAGNESIUM
     Indication: ULCER
     Dosage: 40 MG, QD
     Route: 042
     Dates: start: 20151223
  8. CANDESARTAN SANDOZ [Concomitant]
     Active Substance: CANDESARTAN
     Indication: HYPERTENSION
     Dosage: 16 MG, QD
     Route: 048
  9. ZELITREX [Concomitant]
     Active Substance: VALACYCLOVIR HYDROCHLORIDE
     Indication: INFECTION
     Dosage: 500 MG, BID
  10. CEFTRIAXONE PANPHARMA [Concomitant]
     Active Substance: CEFTRIAXONE
     Indication: INFECTION
     Dosage: 1 G, QD
     Dates: start: 20151212
  11. PENTACARINAT [Concomitant]
     Active Substance: PENTAMIDINE ISETHIONATE
     Indication: PNEUMOCYSTIS JIROVECII PNEUMONIA
     Dosage: UNK
     Dates: end: 20151218

REACTIONS (2)
  - Lung disorder [Fatal]
  - Palmar-plantar erythrodysaesthesia syndrome [Recovering/Resolving]

NARRATIVE: CASE EVENT DATE: 20151213
